FAERS Safety Report 4696933-1 (Version None)
Quarter: 2005Q2

REPORT INFORMATION
  Report Type: 
  Country: None (occurrence: None)
  Receive Date: 20050620
  Receipt Date: 20050422
  Transmission Date: 20051028
  Serious: No
  Sender: FDA-Public Use
  Company Number: US-YAMANOUCHI-YPA20050214

PATIENT
  Age: 75 Year
  Sex: Male
  Weight: 84.8226 kg

DRUGS (10)
  1. VESICARE [Suspect]
     Indication: INCONTINENCE
     Dosage: 5 MG QD PO
     Route: 048
     Dates: start: 20050406
  2. GLUCOPHAGE [Concomitant]
  3. GLUCOTROL XL [Concomitant]
  4. DIOVAN [Concomitant]
  5. ECOTRIN [Concomitant]
  6. SYNTHROID [Concomitant]
  7. HYTRIN [Concomitant]
  8. LIPITOR [Concomitant]
  9. NORVASC [Concomitant]
  10. TOPROL-XL [Concomitant]

REACTIONS (1)
  - VISION BLURRED [None]
